FAERS Safety Report 4590077-5 (Version None)
Quarter: 2005Q1

REPORT INFORMATION
  Report Type: 
  Country: None (occurrence: None)
  Receive Date: 20050217
  Receipt Date: 20050217
  Transmission Date: 20050727
  Serious: Yes (Other)
  Sender: FDA-Public Use
  Company Number: None

PATIENT
  Age: 71 Year
  Sex: Male
  Weight: 82.6 kg

DRUGS (14)
  1. OXYCODONE HCL AND ACETAMINOPHEN [Suspect]
  2. FUROSEMIDE [Concomitant]
  3. BUSPIRONE HCL [Concomitant]
  4. LAMOTRIGINE [Concomitant]
  5. SILDENAFIL CITRATE [Concomitant]
  6. FOSINOPRIL NA [Concomitant]
  7. DILTIATEM (INWOOD) [Concomitant]
  8. ATENOLOL [Concomitant]
  9. BETAMETHASONE DIPROPIONATE [Concomitant]
  10. CLOTRIMAZOLE [Concomitant]
  11. IBUPROFEN [Concomitant]
  12. TERAZOSIN HCL [Concomitant]
  13. TERBINAFINE HYDROCHLORIDE CREAM 1% [Concomitant]
  14. FUROSEMIDE [Concomitant]

REACTIONS (2)
  - HYPERHIDROSIS [None]
  - NAUSEA [None]
